FAERS Safety Report 6999218-3 (Version None)
Quarter: 2010Q3

REPORT INFORMATION
  Report Type: 
  Country: None (occurrence: None)
  Receive Date: 20100920
  Receipt Date: 20100713
  Transmission Date: 20110219
  Serious: Yes (Hospitalization, Other)
  Sender: FDA-Public Use
  Company Number: US-ASTRAZENECA-2010SE33487

PATIENT
  Sex: Female

DRUGS (5)
  1. SEROQUEL [Suspect]
     Route: 048
     Dates: start: 20040101
  2. ZOLOFT [Concomitant]
     Dosage: 100 MG 1 AND 1/2 TABLET QHS
     Dates: start: 20040101
  3. WELLBUTRIN SR [Concomitant]
     Dates: start: 20040101
  4. DEPAKOTE [Concomitant]
     Dates: start: 20040101
  5. CELEXA [Concomitant]
     Dates: start: 20040101

REACTIONS (2)
  - DEPRESSION [None]
  - SUICIDAL IDEATION [None]
